FAERS Safety Report 24041848 (Version 1)
Quarter: 2024Q3

REPORT INFORMATION
  Report Type: Spontaneous
  Country: US (occurrence: None)
  Receive Date: 20240701
  Receipt Date: 20240701
  Transmission Date: 20241016
  Serious: Yes (Life-Threatening, Other)
  Sender: Public
  Company Number: None

PATIENT
  Age: 77 Year
  Sex: Female
  Weight: 71.99 kg

DRUGS (2)
  1. TENECTEPLASE [Suspect]
     Active Substance: TENECTEPLASE
     Indication: Cerebral infarction
     Dosage: 18.75 MG ONCE INTRAVENOUS BOLUS
     Route: 040
     Dates: start: 20240628, end: 20240628
  2. ONDANSETRON [Concomitant]
     Active Substance: ONDANSETRON
     Dates: start: 20240628, end: 20240629

REACTIONS (3)
  - Angioedema [None]
  - Unresponsive to stimuli [None]
  - Haemorrhage intracranial [None]

NARRATIVE: CASE EVENT DATE: 20240628
